FAERS Safety Report 5856868-5 (Version None)
Quarter: 2008Q3

REPORT INFORMATION
  Report Type: 
  Country: None (occurrence: None)
  Receive Date: 20080825
  Receipt Date: 20080813
  Transmission Date: 20090109
  Serious: Yes (Other)
  Sender: FDA-Public Use
  Company Number: US-PFIZER INC-2008068334

PATIENT
  Sex: Female
  Weight: 72.6 kg

DRUGS (5)
  1. CHANTIX [Suspect]
     Indication: SMOKING CESSATION THERAPY
     Dates: start: 20080810, end: 20080812
  2. PROZAC [Concomitant]
  3. GLUCOPHAGE [Concomitant]
  4. TRANXENE [Concomitant]
  5. TRILAFON [Concomitant]

REACTIONS (3)
  - BACK PAIN [None]
  - ILL-DEFINED DISORDER [None]
  - PAIN IN EXTREMITY [None]
